FAERS Safety Report 9060741 (Version 1)
Quarter: 2013Q1

REPORT INFORMATION
  Report Type: Spontaneous
  Country: DE (occurrence: DE)
  Receive Date: 20130204
  Receipt Date: 20130204
  Transmission Date: 20140127
  Serious: Yes (Other)
  Sender: FDA-Public Use
  Company Number: DE-ROCHE-1187249

PATIENT
  Sex: Female

DRUGS (2)
  1. HERCEPTIN [Suspect]
     Indication: BREAST CANCER
     Dosage: RECEIVED 4 CYCLES
     Route: 065
  2. DOCETAXEL [Concomitant]
     Indication: BREAST CANCER
     Dosage: RECEIVED 4 CYCLES
     Route: 065

REACTIONS (1)
  - Ventricular fibrillation [Unknown]
